FAERS Safety Report 8708912 (Version 2)
Quarter: 2012Q4

REPORT INFORMATION
  Report Type: 
  Country: US (occurrence: US)
  Receive Date: 20120806
  Receipt Date: 20121019
  Transmission Date: 20130627
  Serious: Yes (Hospitalization)
  Sender: FDA-Public Use
  Company Number: US-PURDUE-USA-2012-0090867

PATIENT
  Age: 39 Year
  Sex: Male
  Weight: 43.09 kg

DRUGS (2)
  1. DILAUDID TABLET [Suspect]
     Indication: PRODUCT USED FOR UNKNOWN INDICATION
     Dosage: UNK
     Dates: start: 201205
  2. CINRYZE [Suspect]
     Indication: PROPHYLAXIS
     Dosage: 1500 unit, UNK
     Dates: start: 201008, end: 201203

REACTIONS (2)
  - Oedema peripheral [Recovered/Resolved]
  - Drug hypersensitivity [Recovered/Resolved]
